FAERS Safety Report 18318706 (Version 2)
Quarter: 2020Q4

REPORT INFORMATION
  Report Type: Report from Study
  Country: None (occurrence: CA)
  Receive Date: 20200928
  Receipt Date: 20201221
  Transmission Date: 20210113
  Serious: Yes (Other)
  Sender: FDA-Public Use
  Company Number: CA-ABBVIE-20K-028-3581684-00

PATIENT
  Sex: Male

DRUGS (6)
  1. LUPRON DEPOT [Suspect]
     Active Substance: LEUPROLIDE ACETATE
     Indication: PROSTATE CANCER
     Route: 030
  2. RAMIPRIL. [Concomitant]
     Active Substance: RAMIPRIL
     Indication: PRODUCT USED FOR UNKNOWN INDICATION
  3. EYLEA [Concomitant]
     Active Substance: AFLIBERCEPT
     Indication: PRODUCT USED FOR UNKNOWN INDICATION
     Dosage: 40MG/MI/ VIAL
  4. LUPRON DEPOT [Suspect]
     Active Substance: LEUPROLIDE ACETATE
     Route: 030
  5. BICALUTAMIDE. [Concomitant]
     Active Substance: BICALUTAMIDE
     Indication: PRODUCT USED FOR UNKNOWN INDICATION
  6. ROSUVASTATIN. [Concomitant]
     Active Substance: ROSUVASTATIN
     Indication: PRODUCT USED FOR UNKNOWN INDICATION

REACTIONS (7)
  - Ocular hyperaemia [Not Recovered/Not Resolved]
  - Deafness [Unknown]
  - Pain [Not Recovered/Not Resolved]
  - Skin hypertrophy [Not Recovered/Not Resolved]
  - Discomfort [Unknown]
  - Gait disturbance [Not Recovered/Not Resolved]
  - Yellow skin [Not Recovered/Not Resolved]
